FAERS Safety Report 8792549 (Version 4)
Quarter: 2012Q4

REPORT INFORMATION
  Report Type: 
  Country: FR (occurrence: FR)
  Receive Date: 20120918
  Receipt Date: 20121221
  Transmission Date: 20130627
  Serious: Yes (Death)
  Sender: FDA-Public Use
  Company Number: FR-ASTRAZENECA-2012SE72264

PATIENT
  Age: 74 Year
  Sex: Male
  Weight: 75 kg

DRUGS (13)
  1. XEROQUEL [Suspect]
     Indication: BIPOLAR I DISORDER
     Dosage: Dose progressively increased to 200 mg per day.
     Route: 048
     Dates: start: 20120822
  2. XEROQUEL [Suspect]
     Indication: BIPOLAR I DISORDER
     Route: 048
     Dates: start: 2012
  3. DRIPTANE [Concomitant]
  4. HYPERIUM [Concomitant]
  5. MODOPAR [Concomitant]
     Indication: PARKINSON^S DISEASE
  6. SERESTA [Concomitant]
     Indication: ANXIETY
  7. SEROPLEX [Concomitant]
     Indication: DEPRESSION
  8. TRANSIPEG [Concomitant]
  9. IMOVANE [Concomitant]
     Indication: INSOMNIA
  10. THERALENE [Concomitant]
  11. VALIUM [Concomitant]
  12. EDUCTYL [Concomitant]
     Dosage: AS REQUIRED
  13. DEPAKOTE [Concomitant]
     Indication: ABNORMAL BEHAVIOUR

REACTIONS (3)
  - Acute abdomen [Fatal]
  - Cardiopulmonary failure [Fatal]
  - Sedation [Unknown]
